FAERS Safety Report 16169490 (Version 1)
Quarter: 2019Q2

REPORT INFORMATION
  Report Type: Report from Study
  Country: DE (occurrence: DE)
  Receive Date: 20190408
  Receipt Date: 20190408
  Transmission Date: 20190711
  Serious: Yes (Hospitalization)
  Sender: FDA-Public Use
  Company Number: DE-ROCHE-2294737

PATIENT
  Age: 57 Year
  Sex: Female

DRUGS (2)
  1. COBIMETINIB. [Suspect]
     Active Substance: COBIMETINIB
     Indication: METASTATIC MALIGNANT MELANOMA
     Dosage: ON 28/MAR/2019, MOST RECENT DOSE WAS RECEIVED.
     Route: 048
     Dates: start: 20190201
  2. VEMURAFENIB. [Suspect]
     Active Substance: VEMURAFENIB
     Indication: METASTATIC MALIGNANT MELANOMA
     Dosage: ON 28/MAR/2019, MOST RECENT DOSE WAS RECEIVED.
     Route: 048
     Dates: start: 20190201

REACTIONS (2)
  - Fatigue [Not Recovered/Not Resolved]
  - Pancreatitis [Not Recovered/Not Resolved]

NARRATIVE: CASE EVENT DATE: 20190329
